FAERS Safety Report 9894014 (Version 3)
Quarter: 2014Q2

REPORT INFORMATION
  Report Type: Spontaneous
  Country: US (occurrence: US)
  Receive Date: 20140213
  Receipt Date: 20140423
  Transmission Date: 20141212
  Serious: No
  Sender: FDA-Public Use
  Company Number: US-PFIZER INC-2014040437

PATIENT
  Age: 66 Year
  Sex: Female
  Weight: 56.69 kg

DRUGS (4)
  1. SERTRALINE HCL [Suspect]
     Indication: ANXIETY
     Dosage: 12.5 MG, DAILY
     Dates: end: 20140314
  2. ZOLOFT [Suspect]
     Indication: DEPRESSION
     Dosage: 12.5 MG, DAILY
     Route: 048
     Dates: start: 201403, end: 2014
  3. DEPAKOTE [Concomitant]
     Indication: DEPRESSION
     Dosage: 125 MG, DAILY
  4. ADVIL [Concomitant]
     Dosage: UNK

REACTIONS (8)
  - Depressed mood [Unknown]
  - Abdominal discomfort [Recovered/Resolved]
  - Malaise [Recovered/Resolved]
  - Abnormal dreams [Recovered/Resolved]
  - Fear [Recovered/Resolved]
  - Thinking abnormal [Recovered/Resolved]
  - Feeling abnormal [Recovered/Resolved]
  - Abdominal pain upper [Recovered/Resolved]
